FAERS Safety Report 23792892 (Version 1)
Quarter: 2024Q2

REPORT INFORMATION
  Report Type: Spontaneous
  Country: SE (occurrence: SE)
  Receive Date: 20240429
  Receipt Date: 20240429
  Transmission Date: 20240716
  Serious: Yes (Hospitalization, Other)
  Sender: FDA-Public Use
  Company Number: SE-SEMPA-2024-002504

PATIENT
  Age: 14 Year
  Sex: Female

DRUGS (4)
  1. SERTRALINE [Suspect]
     Active Substance: SERTRALINE HYDROCHLORIDE
     Indication: Product used for unknown indication
     Dosage: 200 MILLIGRAM (SERTRALIN)
     Route: 065
     Dates: start: 20230523, end: 20230523
  2. LISDEXAMFETAMINE DIMESYLATE [Suspect]
     Active Substance: LISDEXAMFETAMINE DIMESYLATE
     Indication: Product used for unknown indication
     Dosage: 200 MILLIGRAM (ELVANSE)
     Route: 048
     Dates: start: 20230523, end: 20230523
  3. MELATONIN [Suspect]
     Active Substance: MELATONIN
     Indication: Product used for unknown indication
     Dosage: 20 MILLIGRAM(MELATONIN)
     Route: 065
     Dates: start: 20230523, end: 20230523
  4. PROPIOMAZINE [Suspect]
     Active Substance: PROPIOMAZINE
     Indication: Product used for unknown indication
     Dosage: 200 MILLIGRAM(PROPAVAN)
     Route: 065
     Dates: start: 20230523, end: 20230523

REACTIONS (3)
  - Intentional self-injury [Unknown]
  - Poisoning deliberate [Unknown]
  - Intentional overdose [Unknown]

NARRATIVE: CASE EVENT DATE: 20230523
